FAERS Safety Report 4804717-6 (Version None)
Quarter: 2005Q4

REPORT INFORMATION
  Report Type: 
  Country: None (occurrence: None)
  Receive Date: 20051020
  Receipt Date: 20051011
  Transmission Date: 20060501
  Serious: Yes (Hospitalization)
  Sender: FDA-Public Use
  Company Number: 200517354US

PATIENT
  Sex: Female
  Weight: 67 kg

DRUGS (4)
  1. TAXOTERE [Suspect]
     Indication: DISEASE RECURRENCE
     Dates: start: 20051010, end: 20051010
  2. TAXOTERE [Suspect]
     Indication: OVARIAN CANCER
     Dates: start: 20051010, end: 20051010
  3. CARBOPLATIN [Suspect]
     Indication: OVARIAN CANCER
     Dates: start: 20051010, end: 20051010
  4. UNKNOWN DRUG [Concomitant]
     Indication: DISEASE RECURRENCE
     Dosage: DOSE: NOT PROVIDED

REACTIONS (9)
  - ANAPHYLACTIC REACTION [None]
  - CONVULSION [None]
  - DYSPNOEA [None]
  - HYPOXIA [None]
  - INCOHERENT [None]
  - METASTASES TO CENTRAL NERVOUS SYSTEM [None]
  - OXYGEN SATURATION DECREASED [None]
  - PULSE ABSENT [None]
  - RESPIRATORY ARREST [None]
